FAERS Safety Report 16066916 (Version 1)
Quarter: 2019Q1

REPORT INFORMATION
  Report Type: Spontaneous
  Country: US (occurrence: US)
  Receive Date: 20190212
  Receipt Date: 20190212
  Transmission Date: 20190418
  Serious: Yes (Hospitalization)
  Sender: FDA-Public Use
  Company Number: None

PATIENT
  Age: 37 Year
  Sex: Male

DRUGS (5)
  1. ADCIRCA [Suspect]
     Active Substance: TADALAFIL
     Indication: PULMONARY ARTERIAL HYPERTENSION
     Dosage: 40 MG QAM PO
     Route: 048
     Dates: start: 20170207
  2. AMIODARONE [Concomitant]
     Active Substance: AMIODARONE
  3. GABAPENTIN. [Concomitant]
     Active Substance: GABAPENTIN
  4. POTASSIUM CHLORIDE. [Concomitant]
     Active Substance: POTASSIUM CHLORIDE
  5. FUROSEMIDE. [Concomitant]
     Active Substance: FUROSEMIDE

REACTIONS (4)
  - Asthenia [None]
  - Therapy cessation [None]
  - Insurance issue [None]
  - Subcutaneous abscess [None]

NARRATIVE: CASE EVENT DATE: 201901
